FAERS Safety Report 5408383-0 (Version None)
Quarter: 2007Q3

REPORT INFORMATION
  Report Type: 
  Country: None (occurrence: None)
  Receive Date: 20070806
  Receipt Date: 20070730
  Transmission Date: 20080115
  Serious: Yes (Death, Life-Threatening)
  Sender: FDA-Public Use
  Company Number: 2007SP015343

PATIENT
  Age: 20 Year
  Sex: Male
  Weight: 52 kg

DRUGS (23)
  1. TEMODAL [Suspect]
     Indication: OLIGODENDROGLIOMA
     Dosage: PO, 150 MG/M2; QD; PO
     Route: 048
     Dates: start: 20060824, end: 20060828
  2. TEMODAL [Suspect]
     Indication: OLIGODENDROGLIOMA
     Dosage: PO, 150 MG/M2; QD; PO
     Route: 048
     Dates: start: 20061120, end: 20061124
  3. BAKTAR [Concomitant]
     Indication: DISEASE RECURRENCE
  4. NASEA-OD [Concomitant]
  5. BROCIN CODEINE [Concomitant]
  6. DECADRON [Concomitant]
  7. FAMOTIDINE [Concomitant]
  8. MAGMITT [Concomitant]
  9. PREDONINE [Concomitant]
  10. METHOTREXATE [Concomitant]
  11. SEISHOKU [Concomitant]
  12. VANCOMYCIN [Concomitant]
  13. ROCEPHIN [Concomitant]
  14. TPN [Concomitant]
  15. SODIUM CHLORIDE [Concomitant]
  16. PANTOL [Concomitant]
  17. PRIMPERAN INJ [Concomitant]
  18. LEUCOVORIN CALCIUM [Concomitant]
  19. SOLDEM 3A [Concomitant]
  20. MEYLON [Concomitant]
  21. SOLU-MEDROL [Concomitant]
  22. KYTRIL [Concomitant]
  23. DIAMOX [Concomitant]

REACTIONS (7)
  - BLOOD LACTATE DEHYDROGENASE INCREASED [None]
  - DISEASE PROGRESSION [None]
  - DISSEMINATED INTRAVASCULAR COAGULATION [None]
  - METASTASES TO LIVER [None]
  - METASTASES TO LUNG [None]
  - METASTASES TO SKIN [None]
  - PLATELET COUNT DECREASED [None]
